FAERS Safety Report 4471289-8 (Version None)
Quarter: 2004Q4

REPORT INFORMATION
  Report Type: 
  Country: None (occurrence: None)
  Receive Date: 20041011
  Receipt Date: 20041004
  Transmission Date: 20050328
  Serious: Yes (Hospitalization, Disabling)
  Sender: FDA-Public Use
  Company Number: US-MERCK-0410USA00234

PATIENT
  Age: 69 Year
  Sex: Female

DRUGS (5)
  1. ATENOLOL [Concomitant]
     Route: 065
  2. LIPITOR [Concomitant]
     Route: 065
  3. DYAZIDE [Concomitant]
     Route: 065
  4. SYNTHROID [Concomitant]
     Route: 065
  5. VIOXX [Suspect]
     Indication: BACK PAIN
     Route: 048
     Dates: start: 20000101, end: 20040930

REACTIONS (5)
  - CARDIAC DISORDER [None]
  - CEREBROVASCULAR ACCIDENT [None]
  - DYSPNOEA [None]
  - VASCULAR CALCIFICATION [None]
  - VISUAL ACUITY REDUCED [None]
